FAERS Safety Report 24818480 (Version 1)
Quarter: 2025Q1

REPORT INFORMATION
  Report Type: Spontaneous
  Country: US (occurrence: US)
  Receive Date: 20250108
  Receipt Date: 20250108
  Transmission Date: 20250409
  Serious: Yes (Other)
  Sender: MYLAN
  Company Number: US-MYLANLABS-2025M1000231

PATIENT
  Age: 51 Year
  Sex: Male

DRUGS (2)
  1. ETODOLAC [Suspect]
     Active Substance: ETODOLAC
     Indication: Product used for unknown indication
     Route: 065
  2. PREDNISONE [Suspect]
     Active Substance: PREDNISONE
     Indication: Large intestinal stenosis
     Dosage: 40 MILLIGRAM, QD
     Route: 065

REACTIONS (3)
  - Large intestinal stenosis [Recovered/Resolved]
  - Weight decreased [Unknown]
  - Drug ineffective [Unknown]
